FAERS Safety Report 9902733 (Version 1)
Quarter: 2014Q1

REPORT INFORMATION
  Report Type: Spontaneous
  Country: SE (occurrence: SE)
  Receive Date: 20140217
  Receipt Date: 20140217
  Transmission Date: 20141002
  Serious: Yes (Hospitalization)
  Sender: FDA-Public Use
  Company Number: SE-JNJFOC-20140204254

PATIENT
  Age: 96 Year
  Sex: Female

DRUGS (1)
  1. HALOPERIDOL [Suspect]
     Indication: NAUSEA
     Dosage: NORMAL DOSE: 0.25 TO 0.5 ML AND ON 14-AUG-2013 TOOK 4 ML
     Route: 048
     Dates: start: 20130508, end: 20130814

REACTIONS (4)
  - Somnolence [Unknown]
  - Accidental overdose [Unknown]
  - Daydreaming [Unknown]
  - Feeling abnormal [Unknown]
